FAERS Safety Report 8494196-2 (Version None)
Quarter: 2012Q3

REPORT INFORMATION
  Report Type: 
  Country: None (occurrence: None)
  Receive Date: 20120709
  Receipt Date: 20120705
  Transmission Date: 20120928
  Serious: Yes (Death)
  Sender: FDA-Public Use
  Company Number: PHEH2012US001644

PATIENT
  Sex: Male

DRUGS (2)
  1. MYFORTIC [Suspect]
     Dosage: UNK UKN, UNK
  2. MYFORTIC [Suspect]
     Indication: RENAL TRANSPLANT
     Dosage: 360 MG, BID
     Route: 048
     Dates: start: 20120112, end: 20120503

REACTIONS (2)
  - DIARRHOEA [None]
  - DEATH [None]
